FAERS Safety Report 8935708 (Version 2)
Quarter: 2016Q1

REPORT INFORMATION
  Report Type: Spontaneous
  Country: FR (occurrence: FR)
  Receive Date: 20121130
  Receipt Date: 20160211
  Transmission Date: 20160526
  Serious: Yes (Other)
  Sender: FDA-Public Use
  Company Number: FR-BRISTOL-MYERS SQUIBB COMPANY-17152885

PATIENT
  Age: 53 Year
  Sex: Female

DRUGS (4)
  1. ZOLPIDEM [Suspect]
     Active Substance: ZOLPIDEM\ZOLPIDEM TARTRATE
     Indication: INSOMNIA
     Dosage: UNK UNK, QD
     Route: 048
     Dates: start: 20120611
  2. TAXOL [Suspect]
     Active Substance: PACLITAXEL
     Indication: BREAST CANCER
     Dosage: DAY 1, DAY 8 AND DAY 15
     Route: 042
     Dates: start: 20120430
  3. AVASTIN [Suspect]
     Active Substance: BEVACIZUMAB
     Indication: BREAST CANCER
     Dosage: ON DAY 1 AND DAY 15
     Route: 042
     Dates: start: 20120430
  4. RAMIPRIL. [Suspect]
     Active Substance: RAMIPRIL
     Indication: HYPERTENSION
     Dosage: 15 MG/D ORALLY FROM 29MAY2012 TO 10JUN2012 THEN 10 MG/D TO 17SEP2012
     Route: 048
     Dates: start: 20120529, end: 20120917

REACTIONS (4)
  - Dermatitis acneiform [Unknown]
  - Dermatitis exfoliative [Unknown]
  - Oedema peripheral [Unknown]
  - Off label use [Unknown]

NARRATIVE: CASE EVENT DATE: 20120815
